FAERS Safety Report 24264381 (Version 1)
Quarter: 2024Q3

REPORT INFORMATION
  Report Type: Report from Study
  Country: US (occurrence: None)
  Receive Date: 20240829
  Receipt Date: 20240829
  Transmission Date: 20241016
  Serious: Yes (Other)
  Sender: ASTRAZENECA
  Company Number: 2024A191067

PATIENT
  Sex: Female
  Weight: 74 kg

DRUGS (1)
  1. CALQUENCE [Suspect]
     Active Substance: ACALABRUTINIB
     Indication: Chronic lymphocytic leukaemia
     Route: 048

REACTIONS (5)
  - Myocardial necrosis marker increased [Unknown]
  - Palpitations [Recovered/Resolved]
  - Purpura [Recovered/Resolved]
  - Product dose omission issue [Unknown]
  - Product storage error [Unknown]
